FAERS Safety Report 14587773 (Version 6)
Quarter: 2018Q4

REPORT INFORMATION
  Report Type: Spontaneous
  Country: DE (occurrence: DE)
  Receive Date: 20180301
  Receipt Date: 20181221
  Transmission Date: 20190204
  Serious: Yes (Hospitalization, Other)
  Sender: FDA-Public Use
  Company Number: DE-JNJFOC-20180231580

PATIENT
  Age: 3 Year
  Sex: Male
  Weight: 18.5 kg

DRUGS (39)
  1. LYSODREN [Suspect]
     Active Substance: MITOTANE
     Indication: METASTASES TO LUNG
     Route: 065
     Dates: start: 20171030
  2. LYSODREN [Suspect]
     Active Substance: MITOTANE
     Indication: ADRENOCORTICAL CARCINOMA
     Route: 065
     Dates: start: 20170330, end: 2017
  3. VEPESID [Suspect]
     Active Substance: ETOPOSIDE
     Indication: METASTASES TO LUNG
     Route: 065
     Dates: end: 201707
  4. VINCRISTINE [Suspect]
     Active Substance: VINCRISTINE
     Indication: CHEMOTHERAPY
     Route: 065
     Dates: start: 20170213
  5. HYDROCORTISONE. [Concomitant]
     Active Substance: HYDROCORTISONE
     Indication: PRODUCT USED FOR UNKNOWN INDICATION
     Route: 065
     Dates: start: 201701
  6. DOXORUBICIN HYDROCHLORIDE. [Suspect]
     Active Substance: DOXORUBICIN HYDROCHLORIDE
     Indication: CHEMOTHERAPY
     Route: 042
     Dates: end: 201707
  7. LYSODREN [Suspect]
     Active Substance: MITOTANE
     Indication: ADRENOCORTICAL CARCINOMA
     Route: 065
     Dates: start: 20170315, end: 20170319
  8. VEPESID [Suspect]
     Active Substance: ETOPOSIDE
     Indication: ADRENOCORTICAL CARCINOMA
     Route: 065
     Dates: end: 201707
  9. VINCRISTINE [Suspect]
     Active Substance: VINCRISTINE
     Indication: CHEMOTHERAPY
     Route: 065
     Dates: start: 20170330
  10. FLUDROCORTISONE [Concomitant]
     Active Substance: FLUDROCORTISONE
     Indication: PRODUCT USED FOR UNKNOWN INDICATION
     Route: 065
     Dates: start: 201701
  11. DOXORUBICIN HYDROCHLORIDE. [Suspect]
     Active Substance: DOXORUBICIN HYDROCHLORIDE
     Indication: CHEMOTHERAPY
     Route: 042
     Dates: start: 20170213
  12. DOXORUBICIN HYDROCHLORIDE. [Suspect]
     Active Substance: DOXORUBICIN HYDROCHLORIDE
     Indication: CHEMOTHERAPY
     Route: 042
     Dates: start: 20170330
  13. LYSODREN [Suspect]
     Active Substance: MITOTANE
     Indication: METASTASES TO LUNG
     Route: 065
     Dates: start: 20170714, end: 20171006
  14. VEPESID [Suspect]
     Active Substance: ETOPOSIDE
     Indication: METASTASES TO LUNG
     Route: 065
     Dates: start: 20170330
  15. CARBOPLATIN. [Suspect]
     Active Substance: CARBOPLATIN
     Indication: ADRENOCORTICAL CARCINOMA
     Route: 065
     Dates: start: 20170330
  16. LYSODREN [Suspect]
     Active Substance: MITOTANE
     Indication: METASTASES TO LUNG
     Route: 065
     Dates: start: 20170315, end: 20170319
  17. CARBOPLATIN. [Suspect]
     Active Substance: CARBOPLATIN
     Indication: ADRENOCORTICAL CARCINOMA
     Route: 065
     Dates: start: 20170213
  18. LYSODREN [Suspect]
     Active Substance: MITOTANE
     Indication: ADRENOCORTICAL CARCINOMA
     Route: 065
     Dates: start: 20171010, end: 20171017
  19. LYSODREN [Suspect]
     Active Substance: MITOTANE
     Indication: ADRENOCORTICAL CARCINOMA
     Route: 065
     Dates: start: 2017
  20. LYSODREN [Suspect]
     Active Substance: MITOTANE
     Indication: METASTASES TO LUNG
     Route: 065
     Dates: start: 2017
  21. LYSODREN [Suspect]
     Active Substance: MITOTANE
     Indication: METASTASES TO LUNG
     Route: 065
     Dates: start: 20170118, end: 20170315
  22. LYSODREN [Suspect]
     Active Substance: MITOTANE
     Indication: ADRENOCORTICAL CARCINOMA
     Route: 065
     Dates: start: 20171030
  23. HOLOXAN [Suspect]
     Active Substance: IFOSFAMIDE
     Indication: CHEMOTHERAPY
     Route: 065
     Dates: start: 20170330
  24. VEPESID [Suspect]
     Active Substance: ETOPOSIDE
     Indication: ADRENOCORTICAL CARCINOMA
     Route: 065
     Dates: start: 20170213
  25. CARBOPLATIN. [Suspect]
     Active Substance: CARBOPLATIN
     Indication: METASTASES TO LUNG
     Route: 065
     Dates: start: 20170330
  26. CARBOPLATIN. [Suspect]
     Active Substance: CARBOPLATIN
     Indication: METASTASES TO LUNG
     Route: 065
     Dates: end: 201707
  27. LYSODREN [Suspect]
     Active Substance: MITOTANE
     Indication: METASTASES TO LUNG
     Route: 065
     Dates: start: 20171010, end: 20171017
  28. LYSODREN [Suspect]
     Active Substance: MITOTANE
     Indication: ADRENOCORTICAL CARCINOMA
     Route: 065
     Dates: start: 20170714, end: 20171006
  29. VEPESID [Suspect]
     Active Substance: ETOPOSIDE
     Indication: METASTASES TO LUNG
     Route: 065
     Dates: start: 20170213
  30. LYSODREN [Suspect]
     Active Substance: MITOTANE
     Indication: METASTASES TO LUNG
     Route: 065
     Dates: start: 20170330, end: 2017
  31. HOLOXAN [Suspect]
     Active Substance: IFOSFAMIDE
     Indication: CHEMOTHERAPY
     Route: 065
     Dates: start: 20170213
  32. CARBOPLATIN. [Suspect]
     Active Substance: CARBOPLATIN
     Indication: METASTASES TO LUNG
     Route: 065
     Dates: start: 20170213
  33. AMPHO MORONAL [Concomitant]
     Active Substance: AMPHOTERICIN B
     Indication: PRODUCT USED FOR UNKNOWN INDICATION
     Route: 065
     Dates: start: 201701
  34. TRIMETHOPRIM SULFAMETHOXAZOLE [Concomitant]
     Active Substance: SULFAMETHOXAZOLE\TRIMETHOPRIM
     Indication: PRODUCT USED FOR UNKNOWN INDICATION
     Route: 065
     Dates: start: 201701
  35. LYSODREN [Suspect]
     Active Substance: MITOTANE
     Indication: ADRENOCORTICAL CARCINOMA
     Route: 065
     Dates: start: 20170118, end: 20170315
  36. HOLOXAN [Suspect]
     Active Substance: IFOSFAMIDE
     Indication: CHEMOTHERAPY
     Route: 065
     Dates: end: 201707
  37. VEPESID [Suspect]
     Active Substance: ETOPOSIDE
     Indication: ADRENOCORTICAL CARCINOMA
     Route: 065
     Dates: start: 20170330
  38. CARBOPLATIN. [Suspect]
     Active Substance: CARBOPLATIN
     Indication: ADRENOCORTICAL CARCINOMA
     Route: 065
     Dates: end: 201707
  39. VINCRISTINE [Suspect]
     Active Substance: VINCRISTINE
     Indication: CHEMOTHERAPY
     Route: 065
     Dates: end: 201707

REACTIONS (4)
  - Weight decreased [Recovered/Resolved]
  - Dehydration [Recovered/Resolved]
  - Electrocardiogram QT prolonged [Recovered/Resolved]
  - Sepsis [Recovered/Resolved]

NARRATIVE: CASE EVENT DATE: 201709
